FAERS Safety Report 6318950-8 (Version None)
Quarter: 2009Q3

REPORT INFORMATION
  Report Type: 
  Country: None (occurrence: None)
  Receive Date: 20090821
  Receipt Date: 20081204
  Transmission Date: 20100115
  Serious: No
  Sender: FDA-Public Use
  Company Number: US-ABBOTT-08P-163-0491267-00

PATIENT
  Sex: Female
  Weight: 59.02 kg

DRUGS (7)
  1. NIASPAN [Suspect]
     Indication: BLOOD CHOLESTEROL INCREASED
     Dosage: 500 MG AT NIGHT
     Route: 048
     Dates: start: 20080924, end: 20081130
  2. SIMVASTATIN [Concomitant]
     Indication: BLOOD CHOLESTEROL INCREASED
     Dosage: 40 MG AT NIGHT
     Route: 048
  3. BISOPROLOL [Concomitant]
     Indication: SUPRAVENTRICULAR TACHYCARDIA
     Dosage: 2.5 MG AT NIGHT
     Route: 048
  4. COPAXONE [Concomitant]
     Indication: MULTIPLE SCLEROSIS
     Dosage: 20 MG IN THE MORNING
     Route: 058
  5. CALCIUM [Concomitant]
     Indication: MINERAL SUPPLEMENTATION
     Route: 048
  6. ASCORBIC ACID [Concomitant]
     Indication: VITAMIN SUPPLEMENTATION
     Route: 048
  7. FISH OIL [Concomitant]
     Indication: MEDICAL DIET
     Route: 048

REACTIONS (2)
  - ERYTHEMA [None]
  - SKIN BURNING SENSATION [None]
